FAERS Safety Report 6699732-4 (Version None)
Quarter: 2010Q2

REPORT INFORMATION
  Report Type: 
  Country: None (occurrence: None)
  Receive Date: 20100428
  Receipt Date: 20100419
  Transmission Date: 20101027
  Serious: Yes (Other)
  Sender: FDA-Public Use
  Company Number: JP-JNJFOC-20100406851

PATIENT
  Age: 77 Year
  Sex: Female

DRUGS (1)
  1. CRAVIT [Suspect]
     Indication: ANTIBIOTIC PROPHYLAXIS
     Route: 048

REACTIONS (2)
  - PHARYNGEAL OEDEMA [None]
  - SHOCK [None]
